FAERS Safety Report 6841575-2 (Version None)
Quarter: 2010Q3

REPORT INFORMATION
  Report Type: 
  Country: None (occurrence: None)
  Receive Date: 20100714
  Receipt Date: 20090207
  Transmission Date: 20110219
  Serious: Yes (Hospitalization, Other)
  Sender: FDA-Public Use
  Company Number: US-PFIZER INC-2007051800

PATIENT
  Sex: Female
  Weight: 45.351 kg

DRUGS (6)
  1. CHANTIX [Suspect]
     Dosage: 0.5 MG, 1X/DAY
     Dates: start: 20070617
  2. ZOLOFT [Concomitant]
  3. SEROQUEL [Concomitant]
  4. RITALIN [Concomitant]
  5. TOPAMAX [Concomitant]
  6. GEODON [Concomitant]

REACTIONS (4)
  - CONSTIPATION [None]
  - MALAISE [None]
  - NEPHROLITHIASIS [None]
  - SURGERY [None]
